FAERS Safety Report 4265743-1 (Version None)
Quarter: 2004Q1

REPORT INFORMATION
  Report Type: 
  Country: None (occurrence: None)
  Receive Date: 20040107
  Receipt Date: 20030502
  Transmission Date: 20041129
  Serious: Yes (Life-Threatening, Hospitalization)
  Sender: FDA-Public Use
  Company Number: SE-ROCHE-337291

PATIENT
  Age: 61 Year
  Sex: Male
  Weight: 90 kg

DRUGS (12)
  1. DACLIZUMAB [Suspect]
     Route: 042
     Dates: start: 20030429, end: 20030429
  2. DACLIZUMAB [Suspect]
     Route: 042
     Dates: end: 20030624
  3. MYCOPHENOLATE MOFETIL [Suspect]
     Route: 048
     Dates: start: 20030429
  4. TACROLIMUS [Suspect]
     Route: 048
     Dates: start: 20030430
  5. PREDNISOLONE [Suspect]
     Route: 048
     Dates: start: 20030429
  6. FRUSEMID [Concomitant]
     Route: 042
     Dates: start: 20030430
  7. METOPROLOL [Concomitant]
     Route: 048
     Dates: start: 20030504
  8. DOXAZOSIN MESYLATE [Concomitant]
     Route: 048
     Dates: start: 20030516
  9. ACETYLSALICYLIC ACID SRT [Concomitant]
     Route: 048
     Dates: start: 20030517
  10. BUMETANID [Concomitant]
     Route: 048
     Dates: start: 20030707
  11. POTASSIUM [Concomitant]
     Route: 048
     Dates: start: 20030718
  12. FELODIPIN [Concomitant]
     Route: 048
     Dates: start: 20031230

REACTIONS (8)
  - ARTERIOVENOUS FISTULA, ACQUIRED [None]
  - HAEMOGLOBIN DECREASED [None]
  - HYPOTENSION [None]
  - LARGE INTESTINE PERFORATION [None]
  - PERITONITIS [None]
  - POST PROCEDURAL HAEMORRHAGE [None]
  - VASCULAR STENOSIS [None]
  - VENOUS STENOSIS [None]
